FAERS Safety Report 14336228 (Version 2)
Quarter: 2018Q1

REPORT INFORMATION
  Report Type: Spontaneous
  Country: US (occurrence: US)
  Receive Date: 20171229
  Receipt Date: 20180103
  Transmission Date: 20180509
  Serious: Yes (Other)
  Sender: FDA-Public Use
  Company Number: US-HORIZON-VIM-0180-2017

PATIENT
  Age: 47 Year
  Sex: Male

DRUGS (4)
  1. VERAPAMIL [Concomitant]
     Active Substance: VERAPAMIL HYDROCHLORIDE
     Indication: HYPERTENSION
  2. BABY ASPIRIN [Concomitant]
     Active Substance: ASPIRIN
     Indication: HYPERTENSION
     Dosage: 2 BABY ASPIRIN
  3. LOSARTAN. [Concomitant]
     Active Substance: LOSARTAN
     Indication: HYPERTENSION
  4. VIMOVO [Suspect]
     Active Substance: ESOMEPRAZOLE MAGNESIUM\NAPROXEN
     Indication: LIGAMENT SPRAIN
     Dosage: PATIENT TOOK 1 SAMPLE

REACTIONS (8)
  - Urticaria [Not Recovered/Not Resolved]
  - Off label use [Unknown]
  - Vomiting [Recovered/Resolved]
  - Retching [Recovered/Resolved]
  - Swelling face [Unknown]
  - Rash [Recovering/Resolving]
  - Paraesthesia [Unknown]
  - Lip swelling [Not Recovered/Not Resolved]

NARRATIVE: CASE EVENT DATE: 201712
